FAERS Safety Report 10920816 (Version 1)
Quarter: 2015Q1

REPORT INFORMATION
  Report Type: Spontaneous
  Country: None (occurrence: None)
  Receive Date: 20150313
  Receipt Date: 20150313
  Transmission Date: 20150721
  Serious: No
  Sender: FDA-Public Use
  Company Number: None

PATIENT
  Age: 53 Year
  Sex: Female
  Weight: 119.3 kg

DRUGS (20)
  1. CYMBALTA [Suspect]
     Active Substance: DULOXETINE HYDROCHLORIDE
     Indication: FIBROMYALGIA
  2. CYMBALTA [Suspect]
     Active Substance: DULOXETINE HYDROCHLORIDE
     Indication: SUICIDAL IDEATION
  3. LAMICTAL [Concomitant]
     Active Substance: LAMOTRIGINE
  4. AMARRYL [Concomitant]
  5. XANAX [Concomitant]
     Active Substance: ALPRAZOLAM
  6. VICTOZA [Concomitant]
     Active Substance: LIRAGLUTIDE
  7. METOPROLOL [Concomitant]
     Active Substance: METOPROLOL
  8. BRINTELLIX [Suspect]
     Active Substance: VORTIOXETINE HYDROBROMIDE
     Indication: MAJOR DEPRESSION
     Route: 048
     Dates: start: 20141119, end: 20150311
  9. CYMBALTA [Suspect]
     Active Substance: DULOXETINE HYDROCHLORIDE
     Indication: HOMICIDAL IDEATION
  10. METFORMIN [Concomitant]
     Active Substance: METFORMIN HYDROCHLORIDE
  11. GRALISE [Concomitant]
     Active Substance: GABAPENTIN
  12. MVI [Concomitant]
     Active Substance: VITAMINS
  13. CHONDROITIN [Concomitant]
     Active Substance: CHONDROITIN
  14. VITAMIN D [Concomitant]
     Active Substance: CHOLECALCIFEROL
  15. DETROL [Concomitant]
     Active Substance: TOLTERODINE TARTRATE
  16. GLUCOSAMINE [Concomitant]
     Active Substance: GLUCOSAMINE
  17. NERONTIN [Concomitant]
  18. LANTUS [Concomitant]
     Active Substance: INSULIN GLARGINE
  19. ZANAFLEX [Concomitant]
     Active Substance: TIZANIDINE HYDROCHLORIDE
  20. ALDACTONE [Concomitant]
     Active Substance: SPIRONOLACTONE

REACTIONS (1)
  - Vomiting [None]

NARRATIVE: CASE EVENT DATE: 20150311
